FAERS Safety Report 9369109 (Version 1)
Quarter: 2013Q2

REPORT INFORMATION
  Report Type: Spontaneous
  Country: CN (occurrence: CN)
  Receive Date: 20130626
  Receipt Date: 20130626
  Transmission Date: 20140414
  Serious: Yes (Other)
  Sender: FDA-Public Use
  Company Number: PHHY2013CN058202

PATIENT
  Age: 54 Year
  Sex: Female

DRUGS (1)
  1. ACLASTA [Suspect]
     Indication: ARTHRALGIA
     Dosage: 5 MG/ 100 ML, UNK
     Route: 042
     Dates: start: 20130605

REACTIONS (3)
  - Herpes zoster [Unknown]
  - Pain [Unknown]
  - Emotional disorder [Unknown]
